FAERS Safety Report 20228151 (Version 1)
Quarter: 2021Q4

REPORT INFORMATION
  Report Type: Spontaneous
  Country: BR (occurrence: BR)
  Receive Date: 20211224
  Receipt Date: 20211224
  Transmission Date: 20220303
  Serious: Yes (Other)
  Sender: FDA-Public Use
  Company Number: BR-TAKEDA-2021TUS080670

PATIENT
  Sex: Female
  Weight: 82 kg

DRUGS (4)
  1. LISDEXAMFETAMINE DIMESYLATE [Suspect]
     Active Substance: LISDEXAMFETAMINE DIMESYLATE
     Indication: Attention deficit hyperactivity disorder
     Dosage: 1 DOSAGE FORM
     Route: 048
     Dates: start: 20211124, end: 20211201
  2. OMEGA 3 [Concomitant]
     Active Substance: CAPSAICIN
     Dosage: UNK
     Route: 065
  3. VITAMIN D [Concomitant]
     Active Substance: VITAMIN D NOS
     Dosage: UNK
     Route: 065
  4. VITAMIN B COMPLEX [Concomitant]
     Active Substance: CYANOCOBALAMIN\DEXPANTHENOL\NIACINAMIDE\PYRIDOXINE HYDROCHLORIDE\RIBOFLAVIN 5^-PHOSPHATE SODIUM\THIA
     Dosage: UNK
     Route: 065

REACTIONS (16)
  - Tourette^s disorder [Unknown]
  - Hallucination [Unknown]
  - Malaise [Unknown]
  - Insomnia [Unknown]
  - Therapeutic reaction time decreased [Unknown]
  - Chest pain [Unknown]
  - Fear [Unknown]
  - Anxiety [Unknown]
  - Tinnitus [Unknown]
  - Chest discomfort [Unknown]
  - Muscle spasms [Unknown]
  - Tic [Unknown]
  - Euphoric mood [Unknown]
  - Decreased appetite [Unknown]
  - Nervousness [Unknown]
  - Adverse drug reaction [Unknown]
